FAERS Safety Report 5255880-7 (Version None)
Quarter: 2007Q1

REPORT INFORMATION
  Report Type: 
  Country: None (occurrence: None)
  Receive Date: 20070301
  Receipt Date: 20070221
  Transmission Date: 20070707
  Serious: Yes (Disabling)
  Sender: FDA-Public Use
  Company Number: CIP07000171

PATIENT
  Age: 65 Year
  Sex: Female
  Weight: 60.8 kg

DRUGS (6)
  1. ACTONEL [Suspect]
     Indication: OSTEOPOROSIS
     Dosage: 35 MG ONCE WEEKLY, ORAL
     Route: 048
     Dates: start: 20050107, end: 20070112
  2. SYNTHROID [Concomitant]
  3. CELEXA /00582602/ (CITALOPRAM HYDROBROMIDE) [Concomitant]
  4. LIPITOR [Concomitant]
  5. CALCIUM D /00944201/ (COLECALCIFEROL, CALCIUM CARBONATE) [Concomitant]
  6. DETROL /01350201/ (TOLTERODINE) [Concomitant]

REACTIONS (6)
  - DEFORMITY [None]
  - JOINT CREPITATION [None]
  - MICROGENIA [None]
  - PAIN IN JAW [None]
  - RESORPTION BONE INCREASED [None]
  - TEMPOROMANDIBULAR JOINT SYNDROME [None]
